FAERS Safety Report 5276038-1 (Version None)
Quarter: 2007Q1

REPORT INFORMATION
  Report Type: 
  Country: None (occurrence: None)
  Receive Date: 20061213
  Receipt Date: 20050920
  Transmission Date: 20070707
  Serious: Yes (Hospitalization)
  Sender: FDA-Public Use
  Company Number: 2005UW14001

PATIENT
  Age: 16 Year
  Sex: Female
  Weight: 47.627 kg

DRUGS (3)
  1. SEROQUEL [Suspect]
     Indication: BIPOLAR I DISORDER
     Dates: start: 20050501
  2. TRAZODONE HCL [Concomitant]
  3. TYLENOL [Concomitant]

REACTIONS (3)
  - CONSTIPATION [None]
  - DRUG SCREEN FALSE POSITIVE [None]
  - OVERDOSE [None]
